FAERS Safety Report 9057164 (Version 1)
Quarter: 2013Q1

REPORT INFORMATION
  Report Type: Spontaneous
  Country: US (occurrence: US)
  Receive Date: 20130131
  Receipt Date: 20130131
  Transmission Date: 20140127
  Serious: Yes (Other)
  Sender: FDA-Public Use
  Company Number: US-PFIZER INC-2013023153

PATIENT
  Age: 72 Year
  Sex: Male

DRUGS (1)
  1. FLECTOR [Suspect]
     Indication: PROCEDURAL PAIN
     Dosage: UNK
     Dates: end: 201301

REACTIONS (2)
  - Ulcer [Recovering/Resolving]
  - Gastritis [Recovering/Resolving]
